FAERS Safety Report 16394038 (Version 3)
Quarter: 2019Q3

REPORT INFORMATION
  Report Type: Report from Study
  Country: US (occurrence: US)
  Receive Date: 20190605
  Receipt Date: 20190719
  Transmission Date: 20191004
  Serious: Yes (Hospitalization, Other)
  Sender: FDA-Public Use
  Company Number: US-TAIHO ONCOLOGY  INC-EU-2019-00997

PATIENT
  Age: 69 Year
  Sex: Female
  Weight: 68.1 kg

DRUGS (12)
  1. LONSURF [Suspect]
     Active Substance: TIPIRACIL HYDROCHLORIDE\TRIFLURIDINE
     Dosage: CYCLE NUMBER UNKNOWN
     Route: 048
     Dates: start: 2019
  2. LISINOPRIL. [Concomitant]
     Active Substance: LISINOPRIL
  3. LONSURF [Suspect]
     Active Substance: TIPIRACIL HYDROCHLORIDE\TRIFLURIDINE
     Indication: COLON CANCER
     Dosage: CYCLES 1-2
     Route: 048
     Dates: start: 20190315, end: 201904
  4. PRILOSEC [Concomitant]
     Active Substance: OMEPRAZOLE MAGNESIUM
     Dosage: OTC
  5. ZOFRAN [Concomitant]
     Active Substance: ONDANSETRON HYDROCHLORIDE
     Dosage: NI
  6. VITAMIN D [Concomitant]
     Active Substance: VITAMIN D NOS
     Dosage: NI
  7. LONSURF [Suspect]
     Active Substance: TIPIRACIL HYDROCHLORIDE\TRIFLURIDINE
     Indication: COLON CANCER
     Dosage: CURRENT CYCLE 3. 2X20MG AM, 3X20MG PM.
     Route: 048
     Dates: start: 20190520
  8. LONSURF [Suspect]
     Active Substance: TIPIRACIL HYDROCHLORIDE\TRIFLURIDINE
     Dosage: CYCLE NUMBER UNKNOWN. ON DAYS 1-5, 8-12 Q 28 D CYCLE.
     Route: 048
     Dates: start: 2019, end: 2019
  9. LOPERAMIDE [Concomitant]
     Active Substance: LOPERAMIDE
     Dosage: NI
  10. PROCARDIA [Concomitant]
     Active Substance: NIFEDIPINE
     Dosage: XL
  11. CENTRUM SILVER [Concomitant]
     Active Substance: MINERALS\VITAMINS
     Dosage: NI
  12. HYDROCHLOROTHIAZIDE. [Concomitant]
     Active Substance: HYDROCHLOROTHIAZIDE

REACTIONS (10)
  - Blood pressure decreased [Recovered/Resolved]
  - Nausea [Not Recovered/Not Resolved]
  - Abdominal pain upper [Not Recovered/Not Resolved]
  - Haemoglobin decreased [Recovering/Resolving]
  - Malaise [Unknown]
  - White blood cell count decreased [Recovering/Resolving]
  - Asthenia [Unknown]
  - Vomiting [Not Recovered/Not Resolved]
  - Red blood cell count decreased [Recovering/Resolving]
  - Cytopenia [Not Recovered/Not Resolved]

NARRATIVE: CASE EVENT DATE: 2019
